FAERS Safety Report 23616791 (Version 1)
Quarter: 2024Q1

REPORT INFORMATION
  Report Type: Spontaneous
  Country: DE (occurrence: DE)
  Receive Date: 20240311
  Receipt Date: 20240311
  Transmission Date: 20240409
  Serious: Yes (Hospitalization, Other)
  Sender: FDA-Public Use
  Company Number: DE-OTSUKA-2024_004719

PATIENT
  Sex: Female

DRUGS (1)
  1. ARIPIPRAZOLE [Interacting]
     Active Substance: ARIPIPRAZOLE
     Indication: Adjustment disorder
     Dosage: UNK
     Route: 065

REACTIONS (4)
  - Suicidal ideation [Unknown]
  - Drug level above therapeutic [Unknown]
  - Off label use [Unknown]
  - Drug interaction [Unknown]
